FAERS Safety Report 11578020 (Version 3)
Quarter: 2015Q4

REPORT INFORMATION
  Report Type: Report from Study
  Country: BR (occurrence: BR)
  Receive Date: 20150930
  Receipt Date: 20151028
  Transmission Date: 20160304
  Serious: Yes (Other)
  Sender: FDA-Public Use
  Company Number: PHHY2015BR117194

PATIENT
  Sex: Female

DRUGS (1)
  1. SANDOSTATIN LAR DEPOT [Suspect]
     Active Substance: OCTREOTIDE ACETATE
     Indication: ACROMEGALY
     Dosage: 30 MG, UNK
     Route: 065
     Dates: start: 20150917

REACTIONS (15)
  - Malaise [None]
  - Head discomfort [Unknown]
  - Hernial eventration [Unknown]
  - Tremor [Unknown]
  - Diarrhoea [Unknown]
  - Asthenia [Unknown]
  - General physical health deterioration [Recovering/Resolving]
  - Hyperhidrosis [Unknown]
  - Dysphagia [Unknown]
  - Dysstasia [Unknown]
  - Feeling abnormal [Unknown]
  - Nausea [Unknown]
  - Gait disturbance [Unknown]
  - Headache [Unknown]
  - Vomiting [Unknown]
